FAERS Safety Report 14599807 (Version 1)
Quarter: 2018Q1

REPORT INFORMATION
  Report Type: Spontaneous
  Country: FR (occurrence: FR)
  Receive Date: 20180305
  Receipt Date: 20180305
  Transmission Date: 20180509
  Serious: Yes (Hospitalization, Other)
  Sender: FDA-Public Use
  Company Number: FR-SA-2018SA053136

PATIENT
  Age: 76 Year
  Sex: Female
  Weight: 89 kg

DRUGS (17)
  1. MOVICOL [Concomitant]
     Active Substance: POLYETHYLENE GLYCOL 3350\POTASSIUM CHLORIDE\SODIUM BICARBONATE\SODIUM CHLORIDE
  2. DUPHALAC [Concomitant]
     Active Substance: LACTULOSE
  3. KEPPRA [Suspect]
     Active Substance: LEVETIRACETAM
     Route: 048
     Dates: start: 20171128, end: 20180208
  4. LYRICA [Concomitant]
     Active Substance: PREGABALIN
  5. LANSOPRAZOLE. [Concomitant]
     Active Substance: LANSOPRAZOLE
  6. ACTISKENAN [Concomitant]
     Active Substance: MORPHINE SULFATE
  7. PARACETAMOL [Concomitant]
     Active Substance: ACETAMINOPHEN
  8. LOXEN (NICARDIPINE HYDROCHLORIDE) [Concomitant]
     Active Substance: NICARDIPINE HYDROCHLORIDE
  9. XANAX [Concomitant]
     Active Substance: ALPRAZOLAM
  10. IMOVANE [Concomitant]
     Active Substance: ZOPICLONE
  11. TEMODAL [Suspect]
     Active Substance: TEMOZOLOMIDE
     Indication: GLIOBLASTOMA
     Route: 048
     Dates: start: 20171227, end: 20180124
  12. CYMBALTA [Concomitant]
     Active Substance: DULOXETINE HYDROCHLORIDE
  13. LOVENOX [Suspect]
     Active Substance: ENOXAPARIN SODIUM
     Indication: PROPHYLAXIS
     Route: 058
     Dates: start: 20171114, end: 20180124
  14. SERESTA [Concomitant]
     Active Substance: OXAZEPAM
  15. BACTRIM [Suspect]
     Active Substance: SULFAMETHOXAZOLE\TRIMETHOPRIM
     Indication: PROPHYLAXIS
     Route: 048
     Dates: start: 20171227, end: 20180205
  16. ZOVIRAX [Concomitant]
     Active Substance: ACYCLOVIR
  17. LANSOYL [Concomitant]
     Active Substance: MINERAL OIL

REACTIONS (4)
  - Lymphopenia [Not Recovered/Not Resolved]
  - Agranulocytosis [Not Recovered/Not Resolved]
  - Thrombocytopenia [Not Recovered/Not Resolved]
  - Leukopenia [Not Recovered/Not Resolved]

NARRATIVE: CASE EVENT DATE: 20180123
